FAERS Safety Report 4546679-5 (Version None)
Quarter: 2005Q1

REPORT INFORMATION
  Report Type: 
  Country: None (occurrence: None)
  Receive Date: 20050105
  Receipt Date: 20041216
  Transmission Date: 20050727
  Serious: Yes (Life-Threatening)
  Sender: FDA-Public Use
  Company Number: 9532

PATIENT
  Age: 29 Year
  Sex: Female

DRUGS (4)
  1. FENTANYL [Suspect]
     Indication: INDUCTION OF ANAESTHESIA
     Dosage: 50 MICROGRAM IV
     Route: 042
     Dates: start: 20041119, end: 20041119
  2. ATRACURIUM BESYLATE [Suspect]
     Indication: INDUCTION OF ANAESTHESIA
     Dosage: 25 MICROGRAM IV
     Route: 042
     Dates: start: 20041119, end: 20041119
  3. PROPOFOL [Suspect]
     Indication: INDUCTION OF ANAESTHESIA
     Dosage: 200 MG IV
     Route: 042
     Dates: start: 20041119, end: 20041119
  4. METOCLOPRAMIDE [Suspect]
     Indication: INDUCTION OF ANAESTHESIA
     Dosage: 10 MG IV
     Route: 042
     Dates: start: 20041119, end: 20041119

REACTIONS (5)
  - ANAESTHETIC COMPLICATION [None]
  - CYANOSIS [None]
  - ELECTROCARDIOGRAM ST SEGMENT DEPRESSION [None]
  - HYPOTENSION [None]
  - HYPOXIA [None]
